FAERS Safety Report 8444799-6 (Version None)
Quarter: 2012Q2

REPORT INFORMATION
  Report Type: 
  Country: None (occurrence: None)
  Receive Date: 20120612
  Receipt Date: 20120612
  Transmission Date: 20120825
  Serious: Yes (Death)
  Sender: FDA-Public Use
  Company Number: None

PATIENT
  Age: 81 Year
  Sex: Female
  Weight: 58.514 kg

DRUGS (1)
  1. DILAUDID [Suspect]
     Indication: PROCEDURAL PAIN
     Dosage: 0.4 MG ONCE IV BOLUS
     Route: 040
     Dates: start: 20120116, end: 20120116

REACTIONS (2)
  - UNRESPONSIVE TO STIMULI [None]
  - SEDATION [None]
